FAERS Safety Report 16125398 (Version 1)
Quarter: 2019Q1

REPORT INFORMATION
  Report Type: Spontaneous
  Country: FR (occurrence: FR)
  Receive Date: 20190327
  Receipt Date: 20190327
  Transmission Date: 20190418
  Serious: Yes (Hospitalization)
  Sender: FDA-Public Use
  Company Number: FR-BAXTER-2019BAX005557

PATIENT
  Age: 87 Year
  Sex: Female
  Weight: 73.3 kg

DRUGS (5)
  1. DOLIPRANE [Suspect]
     Active Substance: ACETAMINOPHEN
     Indication: PAIN
     Route: 048
  2. COLCHIMAX (COLCHICINE, TIEMONIUM METHYSULPHATE, PAPAVER SOMNIFERUM POWDER) [Suspect]
     Active Substance: COLCHICINE\OPIUM\TIEMONIUM METHYLSULFATE
     Indication: GOUT
     Route: 048
     Dates: start: 20190116, end: 20190119
  3. METRONIDAZOLE BAXTER 0,5 POUR CENT, SOLUTION INJECTABLE EN POCHE [Suspect]
     Active Substance: METRONIDAZOLE
     Indication: COLITIS
     Route: 042
     Dates: start: 20190116, end: 20190123
  4. CEFOTAXIME BASE [Suspect]
     Active Substance: CEFOTAXIME SODIUM
     Indication: COLITIS
     Route: 058
     Dates: start: 20190116, end: 20190121
  5. ELIQUIS [Suspect]
     Active Substance: APIXABAN
     Indication: ATRIAL FIBRILLATION
     Route: 048
     Dates: start: 20190118, end: 20190123

REACTIONS (2)
  - Hepatocellular injury [Recovering/Resolving]
  - Hepatic failure [Recovering/Resolving]

NARRATIVE: CASE EVENT DATE: 20190121
